FAERS Safety Report 7363594-2 (Version None)
Quarter: 2011Q1

REPORT INFORMATION
  Report Type: 
  Country: None (occurrence: None)
  Receive Date: 20110321
  Receipt Date: 20110316
  Transmission Date: 20110831
  Serious: Yes (Death, Life-Threatening, Hospitalization)
  Sender: FDA-Public Use
  Company Number: FR-PFIZER INC-2009274528

PATIENT
  Age: 80 Year
  Sex: Male

DRUGS (15)
  1. SOLU-MEDROL [Concomitant]
     Dosage: UNK
     Route: 042
     Dates: end: 20090721
  2. LASIX [Concomitant]
     Dosage: UNK
     Route: 048
     Dates: end: 20090721
  3. LOVENOX [Concomitant]
     Dosage: UNK
     Route: 058
     Dates: end: 20090708
  4. FLUCONAZOLE [Suspect]
     Indication: CANDIDIASIS
     Dosage: 200 MG, 1X/DAY
     Route: 048
     Dates: start: 20090713, end: 20090717
  5. OXYNORM [Concomitant]
     Route: 048
  6. NEXIUM [Concomitant]
     Dosage: 40 MG, 1X/DAY
     Route: 048
     Dates: end: 20090721
  7. OXYCONTIN [Concomitant]
     Dosage: 20 MG, 2X/DAY
     Dates: end: 20090721
  8. DIFFU K [Concomitant]
     Dosage: 1 DF, 3X/DAY
     Route: 048
     Dates: end: 20090721
  9. SEROPRAM [Concomitant]
     Dosage: 20 MG, 1X/DAY
     Route: 048
     Dates: end: 20090721
  10. TARCEVA [Concomitant]
     Dosage: 150 MG, 1X/DAY
     Route: 048
     Dates: start: 20090706, end: 20090718
  11. TIORFAN [Concomitant]
     Dosage: 2 DF, 1X/DAY
     Route: 048
     Dates: start: 20090715, end: 20090716
  12. AUGMENTIN '125' [Concomitant]
     Dosage: 1 G, 3X/DAY
     Route: 042
     Dates: end: 20090721
  13. XANAX [Concomitant]
     Dosage: 0.25 MG, 1X/DAY
     Route: 048
     Dates: end: 20090710
  14. FORLAX [Concomitant]
     Route: 048
  15. VITAMIN B1 AND B6 [Concomitant]
     Dosage: 1 DF, 3X/DAY
     Route: 048
     Dates: end: 20090721

REACTIONS (3)
  - THROMBOCYTOPENIA [None]
  - CANDIDA SEPSIS [None]
  - AGRANULOCYTOSIS [None]
